FAERS Safety Report 17162237 (Version 1)
Quarter: 2019Q4

REPORT INFORMATION
  Report Type: Spontaneous
  Country: US (occurrence: US)
  Receive Date: 20191122
  Receipt Date: 20191122
  Transmission Date: 20200122
  Serious: Yes (Hospitalization)
  Sender: FDA-Public Use
  Company Number: None

PATIENT
  Age: 71 Year
  Sex: Male
  Weight: 82.9 kg

DRUGS (2)
  1. GEMCITABINE HYDROCHLORIDE. [Suspect]
     Active Substance: GEMCITABINE HYDROCHLORIDE
  2. CISPLATIN. [Suspect]
     Active Substance: CISPLATIN

REACTIONS (10)
  - Hydronephrosis [None]
  - Orchitis [None]
  - Hypophagia [None]
  - Urinary tract infection [None]
  - Testicular pain [None]
  - Asthenia [None]
  - Confusional state [None]
  - Fatigue [None]
  - Neutropenia [None]
  - Orchitis noninfective [None]

NARRATIVE: CASE EVENT DATE: 20190822
